FAERS Safety Report 5772024-3 (Version None)
Quarter: 2008Q2

REPORT INFORMATION
  Report Type: 
  Country: None (occurrence: None)
  Receive Date: 20080612
  Receipt Date: 20080612
  Transmission Date: 20081010
  Serious: Yes (Hospitalization)
  Sender: FDA-Public Use
  Company Number: None

PATIENT
  Age: 71 Year
  Sex: Male
  Weight: 71.2 kg

DRUGS (1)
  1. AVASTIN [Suspect]
     Indication: LUNG CANCER METASTATIC
     Dosage: 1000 MG EVERY 3 WEEKS IV DRIP
     Route: 041
     Dates: start: 20070710, end: 20070821

REACTIONS (3)
  - IMPAIRED HEALING [None]
  - RECTAL ULCER [None]
  - RECTOURETHRAL FISTULA [None]
